FAERS Safety Report 23130572 (Version 2)
Quarter: 2023Q4

REPORT INFORMATION
  Report Type: Spontaneous
  Country: KR (occurrence: KR)
  Receive Date: 20231031
  Receipt Date: 20231114
  Transmission Date: 20240109
  Serious: Yes (Hospitalization, Other)
  Sender: FDA-Public Use
  Company Number: KR-009507513-2310KOR012043

PATIENT
  Age: 62 Year
  Sex: Female

DRUGS (5)
  1. KEYTRUDA [Suspect]
     Active Substance: PEMBROLIZUMAB
     Dosage: I CYCLE
     Dates: start: 20211130, end: 20211130
  2. PEMETREXED [Suspect]
     Active Substance: PEMETREXED
     Indication: Non-small cell lung cancer stage IV
     Dosage: I CYCLE
     Dates: start: 20211130, end: 20211130
  3. CARBOPLATIN [Suspect]
     Active Substance: CARBOPLATIN
     Indication: Non-small cell lung cancer stage IV
     Dosage: I CYCLE
     Dates: start: 20211130, end: 20211130
  4. AFATINIB [Suspect]
     Active Substance: AFATINIB
     Dosage: 40 MILLIGRAM
     Dates: start: 20220103, end: 20220103
  5. AFATINIB [Suspect]
     Active Substance: AFATINIB
     Dosage: REDUCED DOSE TO 30MG TO 20MG
     Dates: start: 2022, end: 2022

REACTIONS (9)
  - Diabetic ketoacidosis [Unknown]
  - Diabetes mellitus [Unknown]
  - Pruritus [Recovered/Resolved]
  - Mucosal inflammation [Unknown]
  - Diarrhoea [Unknown]
  - Dermatitis acneiform [Unknown]
  - Paronychia [Unknown]
  - Hypophagia [Unknown]
  - Weight decreased [Unknown]

NARRATIVE: CASE EVENT DATE: 20211211
